FAERS Safety Report 7361471-4 (Version None)
Quarter: 2011Q1

REPORT INFORMATION
  Report Type: 
  Country: None (occurrence: None)
  Receive Date: 20110318
  Receipt Date: 20110307
  Transmission Date: 20110831
  Serious: Yes (Hospitalization)
  Sender: FDA-Public Use
  Company Number: CA-JNJFOC-20110304953

PATIENT
  Sex: Male

DRUGS (1)
  1. REMICADE [Suspect]
     Indication: RHEUMATOID ARTHRITIS
     Route: 042

REACTIONS (8)
  - ATRIAL FIBRILLATION [None]
  - PERICARDIAL EFFUSION [None]
  - DELIRIUM [None]
  - SEPTIC SHOCK [None]
  - RENAL TUBULAR NECROSIS [None]
  - PNEUMONIA STREPTOCOCCAL [None]
  - STREPTOCOCCAL BACTERAEMIA [None]
  - CHRONIC LYMPHOCYTIC LEUKAEMIA [None]
